FAERS Safety Report 21340615 (Version 3)
Quarter: 2022Q3

REPORT INFORMATION
  Report Type: Other
  Country: US (occurrence: None)
  Receive Date: 20220916
  Receipt Date: 20220922
  Transmission Date: 20221026
  Serious: Yes (Death)
  Sender: FDA-Public Use
  Company Number: US-ROCHE-3180249

PATIENT
  Age: 65 Year
  Sex: Male

DRUGS (12)
  1. LUCENTIS [Suspect]
     Active Substance: RANIBIZUMAB
     Indication: Retinal disorder
     Dosage: INJECT 0.5MG VIA INTRAVITREAL ADMINISTRATION INTO LEFT EYE EVERY 4-6 WEEKS, FORMULATION: SYRIINGE
     Route: 050
  2. LUCENTIS [Suspect]
     Active Substance: RANIBIZUMAB
  3. LUCENTIS [Suspect]
     Active Substance: RANIBIZUMAB
  4. LUCENTIS [Suspect]
     Active Substance: RANIBIZUMAB
     Indication: Retinal vein occlusion
  5. LUCENTIS [Suspect]
     Active Substance: RANIBIZUMAB
  6. LUCENTIS [Suspect]
     Active Substance: RANIBIZUMAB
  7. LUCENTIS [Suspect]
     Active Substance: RANIBIZUMAB
     Indication: Macular oedema
  8. LUCENTIS [Suspect]
     Active Substance: RANIBIZUMAB
  9. LUCENTIS [Suspect]
     Active Substance: RANIBIZUMAB
  10. LUCENTIS [Suspect]
     Active Substance: RANIBIZUMAB
     Indication: Retinal neovascularisation
  11. LUCENTIS [Suspect]
     Active Substance: RANIBIZUMAB
  12. LUCENTIS [Suspect]
     Active Substance: RANIBIZUMAB

REACTIONS (1)
  - Death [Fatal]

NARRATIVE: CASE EVENT DATE: 20220825
